FAERS Safety Report 8034519-1 (Version None)
Quarter: 2012Q1

REPORT INFORMATION
  Report Type: 
  Country: None (occurrence: None)
  Receive Date: 20120110
  Receipt Date: 20120103
  Transmission Date: 20120608
  Serious: Yes (Other)
  Sender: FDA-Public Use
  Company Number: US-ABBOTT-12P-163-0889022-00

PATIENT
  Sex: Female
  Weight: 74.91 kg

DRUGS (10)
  1. TRILIPIX [Suspect]
     Indication: BLOOD CHOLESTEROL INCREASED
     Dates: start: 20110101, end: 20111001
  2. TRICOR [Suspect]
     Indication: BLOOD CHOLESTEROL INCREASED
     Dates: start: 20090101, end: 20110101
  3. PRILOSEC [Concomitant]
     Indication: GASTROOESOPHAGEAL REFLUX DISEASE
  4. DEPAKOTE ER [Suspect]
     Indication: BIPOLAR DISORDER
     Dates: start: 19960101
  5. PREMARIN [Concomitant]
     Indication: HORMONE REPLACEMENT THERAPY
  6. LOVAZA [Concomitant]
     Indication: BLOOD CHOLESTEROL INCREASED
  7. NORVASC [Suspect]
     Indication: HYPERTENSION
  8. LISINOPRIL [Suspect]
     Indication: HYPERTENSION
  9. ZETIA [Concomitant]
     Indication: BLOOD CHOLESTEROL INCREASED
  10. CALCIUM PLUS B [Concomitant]
     Indication: MINERAL SUPPLEMENTATION

REACTIONS (15)
  - PAIN IN EXTREMITY [None]
  - NEUROPATHY PERIPHERAL [None]
  - WEIGHT DECREASED [None]
  - BLOOD PRESSURE DECREASED [None]
  - VISUAL ACUITY REDUCED [None]
  - DIZZINESS [None]
  - FALL [None]
  - ANKLE FRACTURE [None]
  - CATARACT [None]
  - EYE DISORDER [None]
  - VOMITING [None]
  - WRIST FRACTURE [None]
  - THYROID NEOPLASM [None]
  - TREMOR [None]
  - DRUG INEFFECTIVE [None]
